FAERS Safety Report 24766452 (Version 1)
Quarter: 2024Q4

REPORT INFORMATION
  Report Type: Spontaneous
  Country: US (occurrence: None)
  Receive Date: 20241223
  Receipt Date: 20241223
  Transmission Date: 20250114
  Serious: No
  Sender: Public
  Company Number: None

PATIENT
  Age: 44 Year
  Sex: Female
  Weight: 129.15 kg

DRUGS (1)
  1. SEMAGLUTIDE [Suspect]
     Active Substance: SEMAGLUTIDE
     Indication: Obesity
     Dosage: OTHER QUANTITY : 3 INJECTION(S);?OTHER FREQUENCY : GRADUAL TITRATION;?
     Route: 058
     Dates: start: 202411, end: 20241223

REACTIONS (6)
  - Weight decreased [None]
  - Suspected counterfeit product [None]
  - Gastrointestinal disorder [None]
  - Product label issue [None]
  - Accidental overdose [None]
  - Product dispensing error [None]

NARRATIVE: CASE EVENT DATE: 20241120
